FAERS Safety Report 13687090 (Version 1)
Quarter: 2017Q2

REPORT INFORMATION
  Report Type: Spontaneous
  Country: US (occurrence: US)
  Receive Date: 20170623
  Receipt Date: 20170623
  Transmission Date: 20170830
  Serious: Yes (Hospitalization, Other)
  Sender: FDA-Public Use
  Company Number: US-SAOL THERAPEUTICS-2017SAO00976

PATIENT
  Age: 59 Year
  Sex: Female
  Weight: 48.98 kg

DRUGS (42)
  1. DICLOFENAC POTASSIUM. [Concomitant]
     Active Substance: DICLOFENAC POTASSIUM
     Dosage: 50 MG, 1X/DAY
     Route: 048
     Dates: start: 20170403
  2. OXYCODONE [Concomitant]
     Active Substance: OXYCODONE
     Dosage: 1 TABLETS, AS NEEDED
     Route: 048
     Dates: start: 20170325
  3. FLUTICASONE NASAL SPRAY [Concomitant]
     Active Substance: FLUTICASONE
     Dosage: 50 ?G, 1X/DAY
     Route: 045
  4. OMEPRAZOLE. [Concomitant]
     Active Substance: OMEPRAZOLE
     Dosage: 1 CAPSULES, 1X/DAY
     Route: 048
     Dates: start: 20170511
  5. COENZYME Q10 [Concomitant]
     Active Substance: UBIDECARENONE
     Dosage: 10 MG, 1X/DAY
     Route: 048
  6. ATIVAN [Concomitant]
     Active Substance: LORAZEPAM
     Dosage: 3 TABLETS, AS DIRECTED
     Route: 048
  7. LIORESAL [Suspect]
     Active Substance: BACLOFEN
     Dosage: 96 ?G, \DAY
     Route: 037
     Dates: end: 20170516
  8. LEVOTHYROXINE. [Concomitant]
     Active Substance: LEVOTHYROXINE
     Dosage: 1 CAPSULES, 1X/DAY
     Route: 048
     Dates: start: 20170403
  9. ALBUTEROL. [Concomitant]
     Active Substance: ALBUTEROL
     Dosage: 0.083 %, 4X/DAY
  10. HYDROXYZINE PAMOATE. [Concomitant]
     Active Substance: HYDROXYZINE PAMOATE
     Dosage: 1 CAPSULES, AS NEEDED
     Route: 048
  11. XANAX [Concomitant]
     Active Substance: ALPRAZOLAM
     Dosage: 1 TABLETS, 3X/DAY
     Route: 048
  12. LOTRIMIN 1 % CREAM [Concomitant]
     Dosage: UNK, 2X/DAY
     Route: 061
     Dates: start: 20170123
  13. ACCOLATE [Concomitant]
     Active Substance: ZAFIRLUKAST
     Dosage: 1 TABLETS, 1X/DAY
     Route: 048
     Dates: start: 20170403
  14. MISOPROSTOL. [Concomitant]
     Active Substance: MISOPROSTOL
     Dosage: 1 TABLETS, 1X/DAY
     Route: 048
     Dates: start: 20170511
  15. CHLORHEXIDINE [Concomitant]
     Active Substance: CHLORHEXIDINE
     Dosage: 15 ML, 2X/DAY
     Route: 048
  16. PERIDEX [Concomitant]
     Active Substance: CHLORHEXIDINE GLUCONATE
     Dosage: UNK
     Dates: start: 20160401
  17. MUCINEX D [Concomitant]
     Active Substance: GUAIFENESIN\PSEUDOEPHEDRINE HYDROCHLORIDE
     Route: 048
  18. LIORESAL [Suspect]
     Active Substance: BACLOFEN
     Dosage: 96.1 ?G, \DAY
     Route: 037
     Dates: start: 20170601, end: 20170615
  19. LIORESAL [Suspect]
     Active Substance: BACLOFEN
     Dosage: 115 ?G, \DAY
  20. LIORESAL [Suspect]
     Active Substance: BACLOFEN
     Dosage: 20 MG, 5X/DAY
     Route: 048
  21. LOVASTATIN. [Concomitant]
     Active Substance: LOVASTATIN
     Dosage: 1 TABLETS, 1X/DAY
     Route: 048
     Dates: start: 20170403
  22. GLUCOSOMINE-CHRONDROITIN COMPLEX [Concomitant]
     Dosage: 2 TABLETS, 1X/DAY
     Route: 048
  23. MAXZIDE - 25 [Concomitant]
     Dosage: .5 TABLETS, 1X/DAY
     Route: 048
     Dates: start: 20170403
  24. ZYRTEC [Concomitant]
     Active Substance: CETIRIZINE HYDROCHLORIDE
  25. LIORESAL [Suspect]
     Active Substance: BACLOFEN
     Indication: MUSCLE SPASTICITY
     Dosage: 114.9 ?G, \DAY
     Route: 037
     Dates: start: 20170417, end: 20170601
  26. LIORESAL [Suspect]
     Active Substance: BACLOFEN
     Dosage: 104.9 ?G, \DAY
     Route: 037
     Dates: start: 20170615
  27. TRAZODONE [Concomitant]
     Active Substance: TRAZODONE HYDROCHLORIDE
     Dosage: 1 TABLETS, 1X/DAY
     Route: 048
     Dates: start: 20170403
  28. DIVALPROEX [Concomitant]
     Active Substance: DIVALPROEX SODIUM
     Dosage: 1 TABLETS, 1X/DAY
     Route: 048
     Dates: start: 20170403
  29. BUTALBITAL-ACETAMINOPHEN [Concomitant]
     Dosage: 2 TABLETS, 4X/DAY
     Route: 048
  30. REGLAN [Concomitant]
     Active Substance: METOCLOPRAMIDE HYDROCHLORIDE
     Dosage: UNK
     Dates: start: 20160401
  31. MULTIVITAMIN [Concomitant]
     Active Substance: VITAMINS
     Dosage: 1 CAPSULES, 1X/DAY
     Route: 048
  32. OMEGA-3 FATTY ACIDS [Concomitant]
     Active Substance: OMEGA-3 FATTY ACIDS
     Dosage: 1 CAPSULES, UNK
     Route: 048
  33. TIZANIDINE. [Concomitant]
     Active Substance: TIZANIDINE
     Dosage: 1 CAPSULES, 5X/DAY
     Route: 048
     Dates: start: 20130513
  34. LIORESAL [Suspect]
     Active Substance: BACLOFEN
     Dosage: 20 MG, 4X/DAY
     Route: 048
     Dates: start: 20170516
  35. GABAPENTIN. [Concomitant]
     Active Substance: GABAPENTIN
     Dosage: 1 TABLETS, 4X/DAY
     Route: 048
     Dates: start: 20170403
  36. ALPRAZOLAM. [Concomitant]
     Active Substance: ALPRAZOLAM
     Dosage: 1 TABLETS, 3X/DAY
     Route: 048
  37. DICLOFENAC POTASSIUM. [Concomitant]
     Active Substance: DICLOFENAC POTASSIUM
     Dosage: 1 TABLETS, 1X/DAY
     Route: 048
  38. CALCIUM CARBONATE - VITAMIN D (CALCIUM 500 + D) [Concomitant]
     Dosage: 1 TABLETS, 3X/DAY
     Route: 048
  39. FLOVENT DISKUS 50 ?G [Concomitant]
     Dosage: 1 UNK, 2X/DAY
  40. ATIVAN [Concomitant]
     Active Substance: LORAZEPAM
     Dosage: 2 TABLETS, AS DIRECTED
     Route: 048
  41. DIAZEPAM. [Concomitant]
     Active Substance: DIAZEPAM
     Dosage: 1 TABLETS, 5X/DAY
     Route: 048
     Dates: start: 20170403
  42. HYDROCHLOROTHIAZIDE. [Concomitant]
     Active Substance: HYDROCHLOROTHIAZIDE
     Dosage: 1 TABLETS, 1X/DAY
     Route: 048

REACTIONS (24)
  - Dyspnoea [Unknown]
  - Coma [Unknown]
  - Hemiparesis [Recovered/Resolved]
  - Constipation [Recovered/Resolved]
  - Paraesthesia [Unknown]
  - Hypertension [Recovering/Resolving]
  - Device infusion issue [Recovered/Resolved]
  - Muscle contracture [Unknown]
  - Hypotonia [Unknown]
  - Hypoaesthesia [Recovered/Resolved]
  - Tachycardia [Recovering/Resolving]
  - Overdose [Unknown]
  - Back pain [Unknown]
  - Device kink [Recovered/Resolved]
  - Nervousness [Unknown]
  - Gastrooesophageal reflux disease [Unknown]
  - Asthenia [Recovered/Resolved]
  - Urinary retention [Unknown]
  - Pain in extremity [Unknown]
  - Device dislocation [Recovered/Resolved]
  - Liver function test increased [Unknown]
  - Wheezing [Recovering/Resolving]
  - Anxiety [Unknown]
  - Dysphagia [Unknown]

NARRATIVE: CASE EVENT DATE: 2015
